FAERS Safety Report 9778651 (Version 1)
Quarter: 2013Q4

REPORT INFORMATION
  Report Type: Spontaneous
  Country: IN (occurrence: IN)
  Receive Date: 20131223
  Receipt Date: 20131223
  Transmission Date: 20140711
  Serious: Yes (Other)
  Sender: FDA-Public Use
  Company Number: IN-MYLANLABS-2013S1027948

PATIENT
  Age: 30 Year
  Sex: Male

DRUGS (7)
  1. LITHIUM [Suspect]
     Indication: MANIA
     Route: 065
  2. VALPROATE SEMISODIUM [Concomitant]
     Dosage: 1500 MG/DAY
     Route: 065
  3. OLANZAPINE [Concomitant]
     Indication: MANIA
     Dosage: 20 MG/DAY
     Route: 065
  4. HALOPERIDOL [Concomitant]
     Indication: MANIA
     Dosage: 30 MG/DAY; TITRATED UP BASED ON RESPONSE
     Route: 065
  5. HALOPERIDOL [Concomitant]
     Indication: MANIA
     Route: 030
  6. THIOPENTAL SODIUM [Concomitant]
     Indication: ANAESTHESIA
     Dosage: 3-4 MG/KG
     Route: 065
  7. SUXAMETHONIUM CHLORIDE [Concomitant]
     Indication: ANAESTHESIA
     Dosage: 0.5-1 MG/KG
     Route: 065

REACTIONS (1)
  - Delirium [Recovered/Resolved]
